FAERS Safety Report 7515027-0 (Version None)
Quarter: 2011Q2

REPORT INFORMATION
  Report Type: 
  Country: None (occurrence: None)
  Receive Date: 20110601
  Receipt Date: 20110527
  Transmission Date: 20111010
  Serious: Yes (Hospitalization)
  Sender: FDA-Public Use
  Company Number: JP-B.I. PHARMACEUTICALS,INC./RIDGEFIELD-2011-BP-14034NB

PATIENT
  Age: 79 Year
  Sex: Female

DRUGS (5)
  1. JANUVIA [Concomitant]
     Indication: DIABETES MELLITUS
     Route: 048
  2. MIGLITOL [Concomitant]
     Route: 048
  3. MICARDIS [Concomitant]
     Indication: HYPERTENSION
     Route: 048
  4. PRADAXA [Suspect]
     Indication: ATRIAL FIBRILLATION
     Dosage: 220 MG
     Route: 048
  5. AMARYL [Concomitant]
     Indication: DIABETES MELLITUS
     Route: 048

REACTIONS (1)
  - CEREBROVASCULAR ACCIDENT [None]
